FAERS Safety Report 9432729 (Version 4)
Quarter: 2013Q3

REPORT INFORMATION
  Report Type: Spontaneous
  Country: JP (occurrence: JP)
  Receive Date: 20130729
  Receipt Date: 20130815
  Transmission Date: 20140515
  Serious: Yes (Life-Threatening, Hospitalization)
  Sender: FDA-Public Use
  Company Number: TCI2013A04316

PATIENT
  Age: 76 Year
  Sex: Female

DRUGS (7)
  1. NESINA [Suspect]
     Indication: TYPE 2 DIABETES MELLITUS
     Route: 048
  2. METGLUCO (METFORMIN HYDROCHLORIDE) [Suspect]
     Indication: TYPE 2 DIABETES MELLITUS
     Route: 048
     Dates: start: 20111110, end: 20111209
  3. GLIMICRON (GLICLAZIDE) [Concomitant]
  4. AVAPRO (IRBESARTAN) [Suspect]
     Indication: TYPE 2 DIABETES MELLITUS
     Route: 048
  5. NORVASC (AMLODIPINE BESILATE) [Suspect]
     Indication: HYPERTENSION
     Route: 048
  6. LYRICA (PREGABALIN) [Suspect]
     Indication: DIABETIC NEUROPATHY
     Route: 048
  7. PURSENNID (SENNOSIDE A+B CALCIUM) [Suspect]
     Indication: CONSTIPATION
     Route: 048

REACTIONS (3)
  - Myocardial infarction [None]
  - Hepatic function abnormal [None]
  - Cardiac failure acute [None]
